FAERS Safety Report 4832081-5 (Version None)
Quarter: 2005Q4

REPORT INFORMATION
  Report Type: 
  Country: None (occurrence: None)
  Receive Date: 20051116
  Receipt Date: 20051024
  Transmission Date: 20060501
  Serious: Yes (Other)
  Sender: FDA-Public Use
  Company Number: MED000033

PATIENT
  Age: 48 Year
  Sex: Female

DRUGS (1)
  1. LACTATED RINGER'S IN PLASTIC CONTAINER [Suspect]
     Dosage: 100 ML; CONTINUOUS; IV
     Route: 042
     Dates: start: 20050221, end: 20050221

REACTIONS (4)
  - BURNING SENSATION [None]
  - DYSPNOEA [None]
  - INFUSION RELATED REACTION [None]
  - RASH ERYTHEMATOUS [None]
